FAERS Safety Report 5146691-1 (Version None)
Quarter: 2006Q4

REPORT INFORMATION
  Report Type: 
  Country: None (occurrence: None)
  Receive Date: 20061107
  Receipt Date: 20061107
  Transmission Date: 20070319
  Serious: Yes (Hospitalization, Other)
  Sender: FDA-Public Use
  Company Number: None

PATIENT
  Age: 83 Year
  Sex: Male
  Weight: 109.4 kg

DRUGS (10)
  1. IODIXANOL 320 MGL/ML AMERSHAM HEALTH [Suspect]
     Indication: COMPUTERISED TOMOGRAM
     Dosage: 150ML ONCE IV BOLUS
     Route: 040
     Dates: start: 20060310, end: 20060310
  2. BARIUM E-Z-EM [Suspect]
     Indication: COMPUTERISED TOMOGRAM
     Dosage: 450ML ONCE PO
     Route: 048
     Dates: start: 20060310, end: 20060310
  3. AMLODIPINE [Concomitant]
  4. ENALAPRIL MALEATE [Concomitant]
  5. GABAPENTIN [Concomitant]
  6. TAMSULIN [Concomitant]
  7. AMITRIPTYLINE HCL [Concomitant]
  8. FENOFIBRATE [Concomitant]
  9. DULOXETINE [Concomitant]
  10. HUMULIN 70/30 [Concomitant]

REACTIONS (1)
  - RENAL FAILURE ACUTE [None]
